FAERS Safety Report 7705705-2 (Version None)
Quarter: 2011Q3

REPORT INFORMATION
  Report Type: 
  Country: None (occurrence: None)
  Receive Date: 20110824
  Receipt Date: 20110817
  Transmission Date: 20111222
  Serious: Yes (Hospitalization, Other)
  Sender: FDA-Public Use
  Company Number: US-NOVOPROD-333827

PATIENT
  Sex: Female
  Weight: 75 kg

DRUGS (1)
  1. NOVOLOG MIX 70/30 [Suspect]
     Indication: TYPE 2 DIABETES MELLITUS
     Dosage: 35-40U QD
     Route: 058
     Dates: start: 20060101

REACTIONS (2)
  - BLINDNESS [None]
  - CARDIAC ARREST [None]
